FAERS Safety Report 6398694-7 (Version None)
Quarter: 2009Q4

REPORT INFORMATION
  Report Type: 
  Country: None (occurrence: None)
  Receive Date: 20091013
  Receipt Date: 20090930
  Transmission Date: 20100525
  Serious: Yes (Other)
  Sender: FDA-Public Use
  Company Number: US-ELI_LILLY_AND_COMPANY-US200910000399

PATIENT
  Sex: Male

DRUGS (4)
  1. STRATTERA [Suspect]
     Dosage: 60 MG, UNKNOWN
     Route: 065
     Dates: start: 20030801, end: 20090101
  2. SINGULAIR [Concomitant]
     Dosage: UNK, UNKNOWN
     Route: 065
  3. CONCERTA [Concomitant]
     Dosage: UNK, UNKNOWN
     Route: 065
  4. ARICEPT [Concomitant]
     Dosage: UNK, UNKNOWN
     Route: 065

REACTIONS (3)
  - CARDIOMYOPATHY [None]
  - HEPATITIS [None]
  - TYPE 1 DIABETES MELLITUS [None]
